FAERS Safety Report 16413446 (Version 1)
Quarter: 2019Q2

REPORT INFORMATION
  Report Type: Spontaneous
  Country: DE (occurrence: DE)
  Receive Date: 20190611
  Receipt Date: 20190611
  Transmission Date: 20190711
  Serious: No
  Sender: FDA-Public Use
  Company Number: DE-HORMOSAN PHARMA GMBH-2019-02862

PATIENT
  Age: 16 Year
  Sex: Male

DRUGS (2)
  1. QUETIAPIN-HORMOSAN 400 MG RETARDTABLETTEN [Suspect]
     Active Substance: QUETIAPINE FUMARATE
     Indication: DISSOCIATIVE DISORDER
  2. QUETIAPIN-HORMOSAN 400 MG RETARDTABLETTEN [Suspect]
     Active Substance: QUETIAPINE FUMARATE
     Indication: POST-TRAUMATIC STRESS DISORDER
     Dosage: 400 MILLIGRAM, QD
     Route: 048
     Dates: start: 201810

REACTIONS (1)
  - Drug screen positive [Not Recovered/Not Resolved]
